FAERS Safety Report 7401542-7 (Version None)
Quarter: 2011Q2

REPORT INFORMATION
  Report Type: 
  Country: None (occurrence: None)
  Receive Date: 20110408
  Receipt Date: 20110331
  Transmission Date: 20111010
  Serious: Yes (Life-Threatening, Hospitalization)
  Sender: FDA-Public Use
  Company Number: GR-BIOGENIDEC-2011BI012303

PATIENT
  Age: 29 Year
  Sex: Male
  Weight: 65 kg

DRUGS (3)
  1. TYSABRI [Suspect]
     Indication: MULTIPLE SCLEROSIS
     Route: 042
     Dates: start: 20081101, end: 20101101
  2. SOLU-MEDROL [Concomitant]
     Route: 042
  3. TYSABRI [Suspect]
     Route: 042
     Dates: start: 20110201, end: 20110201

REACTIONS (2)
  - MULTIPLE SCLEROSIS RELAPSE [None]
  - MYOCARDITIS [None]
